FAERS Safety Report 7011662-7 (Version None)
Quarter: 2010Q3

REPORT INFORMATION
  Report Type: 
  Country: None (occurrence: None)
  Receive Date: 20100923
  Receipt Date: 20090505
  Transmission Date: 20110219
  Serious: No
  Sender: FDA-Public Use
  Company Number: US-WYE-H09229309

PATIENT
  Sex: Female
  Weight: 56.75 kg

DRUGS (2)
  1. PREMARIN [Suspect]
     Indication: VULVOVAGINAL DRYNESS
     Route: 067
     Dates: start: 20090320, end: 20090402
  2. PREMARIN [Suspect]
     Route: 067
     Dates: start: 20090414, end: 20090422

REACTIONS (6)
  - APPLICATION SITE PAIN [None]
  - DIARRHOEA [None]
  - OROPHARYNGEAL PAIN [None]
  - PYREXIA [None]
  - VULVOVAGINAL MYCOTIC INFECTION [None]
  - WITHDRAWAL SYNDROME [None]
